FAERS Safety Report 23624342 (Version 1)
Quarter: 2024Q1

REPORT INFORMATION
  Report Type: Report from Study
  Country: NL (occurrence: NL)
  Receive Date: 20240312
  Receipt Date: 20240312
  Transmission Date: 20240409
  Serious: Yes (Hospitalization)
  Sender: FDA-Public Use
  Company Number: NL-MYLANLABS-2024M1020748

PATIENT
  Age: 81 Year
  Sex: Female

DRUGS (1)
  1. CREON [Suspect]
     Active Substance: PANCRELIPASE AMYLASE\PANCRELIPASE LIPASE\PANCRELIPASE PROTEASE
     Indication: Pancreatic carcinoma
     Dosage: 3 DOSAGE FORM, QD (3X DAILY 10,000 AND 25000)
     Route: 048
     Dates: start: 20200716

REACTIONS (1)
  - Fracture [Recovering/Resolving]

NARRATIVE: CASE EVENT DATE: 20240130
